FAERS Safety Report 17455583 (Version 1)
Quarter: 2020Q1

REPORT INFORMATION
  Report Type: Other
  Country: AT (occurrence: AT)
  Receive Date: 20200225
  Receipt Date: 20200225
  Transmission Date: 20200409
  Serious: Yes (Hospitalization)
  Sender: FDA-Public Use
  Company Number: AT-CELLTRION INC.-2020AT019522

PATIENT

DRUGS (3)
  1. PARKEMED [Concomitant]
     Active Substance: MEFENAMIC ACID
     Indication: SPONDYLITIS
     Dosage: UPTO 1500MG/DAY
  2. REMSIMA [Suspect]
     Active Substance: INFLIXIMAB
     Indication: SPONDYLITIS
     Dosage: 500MG P.INF. /5 WEEKS
     Route: 042
     Dates: start: 200812, end: 202001
  3. ACEMIN [LISINOPRIL] [Concomitant]
     Active Substance: LISINOPRIL
     Indication: HYPERTENSION
     Dosage: 10MG/DAY

REACTIONS (4)
  - Pancreatitis relapsing [Not Recovered/Not Resolved]
  - Product use issue [Unknown]
  - Cholecystectomy [Not Recovered/Not Resolved]
  - Underdose [Unknown]

NARRATIVE: CASE EVENT DATE: 201909
